FAERS Safety Report 24122306 (Version 2)
Quarter: 2024Q3

REPORT INFORMATION
  Report Type: Spontaneous
  Country: IT (occurrence: IT)
  Receive Date: 20240722
  Receipt Date: 20240904
  Transmission Date: 20241016
  Serious: Yes (Other)
  Sender: TEVA
  Company Number: IT-TEVA-VS-3220744

PATIENT
  Age: 6 Year
  Sex: Female

DRUGS (14)
  1. EMTRICITABINE\TENOFOVIR [Suspect]
     Active Substance: EMTRICITABINE\TENOFOVIR
     Indication: HIV infection
     Route: 065
  2. CYCLOPHOSPHAMIDE [Interacting]
     Active Substance: CYCLOPHOSPHAMIDE
     Indication: Burkitt^s lymphoma
     Dosage: IN CYCLE 2 AND 5 (AS A PART OF 6?CYCLES OF CHEMOTHERAPY ON A 15?DAYS SCHEDULE)
     Route: 065
  3. DAUNORUBICIN [Interacting]
     Active Substance: DAUNORUBICIN
     Indication: Burkitt^s lymphoma
     Dosage: IN CYCLE 2 AND 5 (AS A PART OF 6?CYCLES OF CHEMOTHERAPY ON A 15?DAYS SCHEDULE)
     Route: 065
  4. VINDESINE [Interacting]
     Active Substance: VINDESINE
     Indication: Burkitt^s lymphoma
     Dosage: IN CYCLE 3 AND 6 (AS A PART OF 6?CYCLES OF CHEMOTHERAPY ON A 15?DAYS SCHEDULE)
     Route: 065
  5. IFOSFAMIDE [Interacting]
     Active Substance: IFOSFAMIDE
     Indication: Burkitt^s lymphoma
     Dosage: IN CYCLE 1 AND 4 (AS A PART OF 6?CYCLES OF CHEMOTHERAPY ON A 15?DAYS SCHEDULE)
     Route: 065
  6. CYTARABINE [Interacting]
     Active Substance: CYTARABINE
     Indication: Burkitt^s lymphoma
     Dosage: 3 G/M2 IN CYCLE 3 AND 6 (AS A PART OF 6?CYCLES OF CHEMOTHERAPY ON A 15?DAYS SCHEDULE)
     Route: 065
  7. CYTARABINE [Interacting]
     Active Substance: CYTARABINE
     Indication: Burkitt^s lymphoma
     Dosage: IN CYCLE 1 AND 4 (AS A PART OF 6?CYCLES OF CHEMOTHERAPY ON A 15?DAYS SCHEDULE)
     Route: 065
  8. DEXAMETHASONE [Interacting]
     Active Substance: DEXAMETHASONE
     Indication: Burkitt^s lymphoma
     Dosage: IN CYCLE 3 AND 6 (AS A PART OF 6?CYCLES OF CHEMOTHERAPY ON A 15?DAYS SCHEDULE)
     Route: 065
  9. DEXAMETHASONE [Interacting]
     Active Substance: DEXAMETHASONE
     Indication: Burkitt^s lymphoma
     Dosage: IN CYCLE 1,2, 4 AND 5 (AS A PART OF 6?CYCLES OF CHEMOTHERAPY ON A 15?DAYS SCHEDULE)
     Route: 065
  10. ETOPOSIDE [Suspect]
     Active Substance: ETOPOSIDE
     Indication: Burkitt^s lymphoma
     Dosage: IN CYCLE 1, 3, 4 AND 6 (AS A PART OF 6?CYCLES OF CHEMOTHERAPY ON A 15?DAYS SCHEDULE)
     Route: 065
  11. RITUXIMAB [Interacting]
     Active Substance: RITUXIMAB
     Indication: Burkitt^s lymphoma
     Dosage: INFUSION; EACH CHEMOTHERAPY CYCLE WAS PRECEDED BY AN INFUSION
     Route: 065
  12. RALTEGRAVIR [Interacting]
     Active Substance: RALTEGRAVIR
     Indication: HIV infection
     Route: 065
  13. METHOTREXATE [Suspect]
     Active Substance: METHOTREXATE
     Indication: Burkitt^s lymphoma
     Dosage: DOSAGE: 5 G/M^2 IN CYCLE 1, 2, 4 AND 5 (AS A PART OF 6?CYCLES OF CHEMOTHERAPY ON A 15?DAYS SCHEDULE)
     Route: 065
  14. VINCRISTINE [Suspect]
     Active Substance: VINCRISTINE
     Indication: Burkitt^s lymphoma
     Dosage: IN CYCLE 1, 2, 4 AND 5 (AS A PART OF 6?CYCLES OF CHEMOTHERAPY ON A 15?DAYS SCHEDULE)
     Route: 065

REACTIONS (2)
  - Neutropenia [Recovered/Resolved]
  - Drug interaction [Unknown]
